FAERS Safety Report 24074823 (Version 4)
Quarter: 2025Q1

REPORT INFORMATION
  Report Type: Spontaneous
  Country: US (occurrence: US)
  Receive Date: 20240710
  Receipt Date: 20250211
  Transmission Date: 20250408
  Serious: Yes (Death, Hospitalization, Other)
  Sender: IOVANCE BIOTHERAPEUTICS MANUFACTURING LLC
  Company Number: US-IOVANCE BIOTHERAPEUTICS INC.-IOV2024000014

PATIENT

DRUGS (6)
  1. PROLEUKIN [Suspect]
     Active Substance: ALDESLEUKIN
     Indication: Metastatic malignant melanoma
     Route: 042
     Dates: start: 20240626
  2. PROLEUKIN [Suspect]
     Active Substance: ALDESLEUKIN
     Route: 042
     Dates: start: 20240626
  3. LIFILEUCEL [Concomitant]
     Active Substance: LIFILEUCEL
     Indication: Malignant melanoma
     Route: 065
     Dates: start: 20240625
  4. FLUDARABINE [Concomitant]
     Active Substance: FLUDARABINE PHOSPHATE
     Indication: Chemotherapy
     Route: 065
     Dates: start: 20240620, end: 20240624
  5. CYTOXAN [Concomitant]
     Active Substance: CYCLOPHOSPHAMIDE
     Indication: Chemotherapy
     Route: 065
     Dates: start: 20240620, end: 20240620
  6. CYTOXAN [Concomitant]
     Active Substance: CYCLOPHOSPHAMIDE
     Route: 065
     Dates: start: 20240621, end: 20240621

REACTIONS (6)
  - Atelectasis [Not Recovered/Not Resolved]
  - Cardiac arrest [Fatal]
  - Pulmonary oedema [Not Recovered/Not Resolved]
  - Acidosis [Not Recovered/Not Resolved]
  - Acute kidney injury [Not Recovered/Not Resolved]
  - Pleural effusion [Not Recovered/Not Resolved]

NARRATIVE: CASE EVENT DATE: 20240626
